FAERS Safety Report 5670640-0 (Version None)
Quarter: 2008Q1

REPORT INFORMATION
  Report Type: 
  Country: None (occurrence: None)
  Receive Date: 20080314
  Receipt Date: 20080314
  Transmission Date: 20080703
  Serious: No
  Sender: FDA-Public Use
  Company Number: None

PATIENT
  Age: 34 Year
  Sex: Female

DRUGS (1)
  1. PREDNISONE [Suspect]
     Dosage: 15MG DAILY PO
     Route: 048
     Dates: start: 20071110, end: 20080131

REACTIONS (1)
  - MYOPATHY STEROID [None]
